FAERS Safety Report 24146460 (Version 1)
Quarter: 2024Q3

REPORT INFORMATION
  Report Type: Spontaneous
  Country: US (occurrence: None)
  Receive Date: 20240726
  Receipt Date: 20240726
  Transmission Date: 20241017
  Serious: Yes (Hospitalization)
  Sender: Public
  Company Number: None

PATIENT
  Age: 46 Year
  Sex: Male
  Weight: 159 kg

DRUGS (3)
  1. FLUOROURACIL [Suspect]
     Active Substance: FLUOROURACIL
     Dates: end: 20230518
  2. LEUCOVORIN CALCIUM [Suspect]
     Active Substance: LEUCOVORIN CALCIUM
     Dates: end: 20230516
  3. ELOXATIN [Suspect]
     Active Substance: OXALIPLATIN
     Dates: end: 20230516

REACTIONS (3)
  - Escherichia bacteraemia [None]
  - Diverticulitis [None]
  - Streptococcal bacteraemia [None]

NARRATIVE: CASE EVENT DATE: 20230527
